FAERS Safety Report 5220512-0 (Version None)
Quarter: 2007Q1

REPORT INFORMATION
  Report Type: 
  Country: None (occurrence: None)
  Receive Date: 20070125
  Receipt Date: 20070125
  Transmission Date: 20070707
  Serious: Yes (Hospitalization)
  Sender: FDA-Public Use
  Company Number: None

PATIENT
  Sex: Female
  Weight: 68.0396 kg

DRUGS (3)
  1. PROTONIX [Suspect]
     Dosage: PO X1 DOSE
     Route: 048
     Dates: start: 20060511
  2. ALBUTEROL [Concomitant]
  3. BIRTH CONTROL PILLS [Concomitant]

REACTIONS (3)
  - PRURITUS [None]
  - RASH GENERALISED [None]
  - URTICARIA [None]
